FAERS Safety Report 5491559-4 (Version None)
Quarter: 2007Q4

REPORT INFORMATION
  Report Type: 
  Country: None (occurrence: None)
  Receive Date: 20071018
  Receipt Date: 20071018
  Transmission Date: 20080405
  Serious: Yes (Hospitalization)
  Sender: FDA-Public Use
  Company Number: None

PATIENT
  Sex: Female
  Weight: 61.2356 kg

DRUGS (2)
  1. AVASTIN [Suspect]
     Indication: BREAST CANCER
     Dosage: 617 MG IV Q 2WK
     Route: 042
     Dates: start: 20071010
  2. TAXOL [Concomitant]

REACTIONS (3)
  - ABDOMINAL ABSCESS [None]
  - ABDOMINAL PAIN [None]
  - APPENDICECTOMY [None]
